FAERS Safety Report 4863945-4 (Version None)
Quarter: 2005Q4

REPORT INFORMATION
  Report Type: 
  Country: None (occurrence: None)
  Receive Date: 20051219
  Receipt Date: 20051213
  Transmission Date: 20060501
  Serious: Yes (Hospitalization, Other)
  Sender: FDA-Public Use
  Company Number: ITWYE233614DEC05

PATIENT
  Age: 74 Year
  Sex: Female

DRUGS (1)
  1. TAZOCIN (PIPERACILLIN/TAZOBACTAM, INJECTION) [Suspect]
     Indication: SKIN ULCER
     Dosage: 4 G 1X PER 1 DAY IM
     Route: 030
     Dates: start: 20051201, end: 20051203

REACTIONS (1)
  - RASH PAPULAR [None]
